FAERS Safety Report 5319222-0 (Version None)
Quarter: 2007Q1

REPORT INFORMATION
  Report Type: 
  Country: None (occurrence: None)
  Receive Date: 20070206
  Receipt Date: 20060606
  Transmission Date: 20070707
  Serious: Yes (Hospitalization)
  Sender: FDA-Public Use
  Company Number: 2006-BP-028820RO

PATIENT
  Age: 76 Year
  Sex: Female

DRUGS (1)
  1. LITHIUM CITRATE [Suspect]
     Dosage: 200 MG, PO
     Route: 048
     Dates: start: 20060228

REACTIONS (2)
  - PHARMACEUTICAL PRODUCT COMPLAINT [None]
  - THERAPEUTIC AGENT TOXICITY [None]
